FAERS Safety Report 23614857 (Version 2)
Quarter: 2024Q3

REPORT INFORMATION
  Report Type: Report from Study
  Country: CA (occurrence: CA)
  Receive Date: 20240311
  Receipt Date: 20240930
  Transmission Date: 20241017
  Serious: Yes (Other)
  Sender: SANDOZ
  Company Number: CA-SANDOZ-SDZ2024CA025446

PATIENT
  Sex: Female

DRUGS (1)
  1. HYRIMOZ [Suspect]
     Active Substance: ADALIMUMAB-ADAZ
     Indication: Crohn^s disease
     Dosage: 40 MG, Q2W
     Route: 058
     Dates: start: 20231013

REACTIONS (9)
  - Loss of consciousness [Unknown]
  - Ileal stenosis [Unknown]
  - Blood pressure decreased [Unknown]
  - Fall [Unknown]
  - Head injury [Unknown]
  - Enteritis [Unknown]
  - Therapy change [Unknown]
  - Arthritis [Unknown]
  - Tooth abscess [Recovered/Resolved]
